FAERS Safety Report 13403586 (Version 1)
Quarter: 2017Q2

REPORT INFORMATION
  Report Type: Spontaneous
  Country: US (occurrence: US)
  Receive Date: 20170404
  Receipt Date: 20170404
  Transmission Date: 20170830
  Serious: Yes (Other)
  Sender: FDA-Public Use
  Company Number: None

PATIENT
  Age: 66 Year
  Sex: Female
  Weight: 98.1 kg

DRUGS (11)
  1. ATROVASTON [Concomitant]
  2. DOC QUESTIONS LACE [Concomitant]
  3. DHA [Concomitant]
     Active Substance: DIETARY SUPPLEMENT
  4. LORATADINE. [Concomitant]
     Active Substance: LORATADINE
  5. OXYCONTIN [Suspect]
     Active Substance: OXYCODONE HYDROCHLORIDE
     Indication: PAIN
     Dosage: ?          QUANTITY:34 TABLET(S);?
     Route: 048
     Dates: start: 20170327, end: 20170330
  6. ZOLOFT [Concomitant]
     Active Substance: SERTRALINE HYDROCHLORIDE
  7. LISINAPRIL HCTZ [Concomitant]
  8. MELITONIN [Concomitant]
  9. MORPHINE [Suspect]
     Active Substance: MORPHINE
     Indication: PAIN
     Dosage: ?          QUANTITY:56 TABLET(S);?
     Route: 048
     Dates: start: 20170317, end: 20170327
  10. LEVOTHROXINE [Concomitant]
     Active Substance: LEVOTHYROXINE
  11. GERITOL [Concomitant]
     Active Substance: MINERALS\VITAMINS

REACTIONS (3)
  - Confusional state [None]
  - Malaise [None]
  - Foreign body [None]

NARRATIVE: CASE EVENT DATE: 20170329
